FAERS Safety Report 6820308-X (Version None)
Quarter: 2010Q3

REPORT INFORMATION
  Report Type: 
  Country: None (occurrence: None)
  Receive Date: 20100707
  Receipt Date: 20100701
  Transmission Date: 20110219
  Serious: Yes (Hospitalization)
  Sender: FDA-Public Use
  Company Number: US-B.I. PHARMACEUTICALS,INC./RIDGEFIELD-2010-BP-07455BP

PATIENT
  Age: 77 Year
  Sex: Female

DRUGS (11)
  1. MICARDIS [Suspect]
     Indication: PRODUCT USED FOR UNKNOWN INDICATION
     Dosage: 80 MG
  2. THALIDOMIDE [Suspect]
     Indication: MULTIPLE MYELOMA
     Dosage: 100 MG
     Route: 048
     Dates: start: 20090429
  3. THALIDOMIDE [Suspect]
     Dosage: 100 MG
     Route: 048
     Dates: start: 20100517, end: 20100529
  4. MELPHALAN HYDROCHLORIDE [Suspect]
     Indication: MULTIPLE MYELOMA
     Route: 048
     Dates: start: 20090429
  5. MELPHALAN HYDROCHLORIDE [Suspect]
     Route: 048
     Dates: start: 20100517, end: 20100520
  6. PREDNISONE [Suspect]
     Indication: MULTIPLE MYELOMA
     Dosage: 100 MG
     Route: 048
     Dates: start: 20090429
  7. PREDNISONE [Suspect]
     Dosage: 100 MG
     Route: 048
     Dates: start: 20100517, end: 20100520
  8. GABAPENTIN [Suspect]
     Indication: PRODUCT USED FOR UNKNOWN INDICATION
     Dosage: 600 MG
     Route: 065
  9. OXYBUTYNIN CHLORIDE [Suspect]
     Indication: PRODUCT USED FOR UNKNOWN INDICATION
     Dosage: 5 MG
     Route: 065
  10. ASPIRIN [Concomitant]
     Indication: MULTIPLE MYELOMA
     Dosage: 325 MG
     Route: 048
     Dates: start: 20090429
  11. ASPIRIN [Concomitant]
     Dosage: 325 MG
     Route: 048
     Dates: start: 20100517

REACTIONS (4)
  - CONFUSIONAL STATE [None]
  - HYPERNATRAEMIA [None]
  - HYPONATRAEMIA [None]
  - MUSCULAR WEAKNESS [None]
